FAERS Safety Report 11560916 (Version 2)
Quarter: 2016Q1

REPORT INFORMATION
  Report Type: Report from Study
  Country: US (occurrence: US)
  Receive Date: 20150928
  Receipt Date: 20160211
  Transmission Date: 20160525
  Serious: Yes (Hospitalization)
  Sender: FDA-Public Use
  Company Number: US-GILEAD-2015-0173861

PATIENT
  Age: 55 Year
  Sex: Female

DRUGS (29)
  1. FERROUS SULFATE [Concomitant]
     Active Substance: FERROUS SULFATE\FERROUS SULFATE, DRIED
  2. LEVBID [Concomitant]
     Active Substance: HYOSCYAMINE SULFATE
  3. AMBRISENTAN [Suspect]
     Active Substance: AMBRISENTAN
     Indication: PULMONARY HYPERTENSION
     Dosage: 10 MG, QD
     Route: 065
     Dates: start: 20120921
  4. REMODULIN [Suspect]
     Active Substance: TREPROSTINIL
     Indication: PRODUCT USED FOR UNKNOWN INDICATION
     Dosage: 0.066 UG/KG, UNK
     Route: 042
     Dates: start: 20131210
  5. ADVAIR HFA [Concomitant]
     Active Substance: FLUTICASONE PROPIONATE\SALMETEROL XINAFOATE
  6. LASIX [Concomitant]
     Active Substance: FUROSEMIDE
  7. DOPAMINE                           /00360702/ [Concomitant]
  8. BIAXIN [Concomitant]
     Active Substance: CLARITHROMYCIN
  9. ADCIRCA [Suspect]
     Active Substance: TADALAFIL
     Indication: PRODUCT USED FOR UNKNOWN INDICATION
     Route: 065
  10. GABAPENTIN. [Suspect]
     Active Substance: GABAPENTIN
     Indication: PAIN IN EXTREMITY
     Route: 065
  11. FLONASE                            /00908302/ [Concomitant]
     Active Substance: MOMETASONE FUROATE
  12. DIAMOX                             /00016901/ [Concomitant]
     Active Substance: ACETAZOLAMIDE
  13. XANAX [Concomitant]
     Active Substance: ALPRAZOLAM
  14. NYSTATIN. [Concomitant]
     Active Substance: NYSTATIN
  15. MIDODRINE [Concomitant]
     Active Substance: MIDODRINE
  16. TOPROL XL [Concomitant]
     Active Substance: METOPROLOL SUCCINATE
  17. ALDACTONE [Concomitant]
     Active Substance: SPIRONOLACTONE
  18. COMPAZINE [Concomitant]
     Active Substance: PROCHLORPERAZINE MALEATE
  19. METOLAZONE. [Concomitant]
     Active Substance: METOLAZONE
  20. TUMS                               /00193601/ [Concomitant]
     Active Substance: CALCIUM CARBONATE\MAGNESIUM CARBONATE\MAGNESIUM TRISILICATE
  21. TYLENOL [Concomitant]
     Active Substance: ACETAMINOPHEN
  22. SYNTHROID [Concomitant]
     Active Substance: LEVOTHYROXINE SODIUM
  23. PRILOSEC [Concomitant]
     Active Substance: OMEPRAZOLE MAGNESIUM
  24. PROAIR HFA [Concomitant]
     Active Substance: ALBUTEROL SULFATE
  25. POTASSIUM [Concomitant]
     Active Substance: POTASSIUM
  26. CLARITIN [Concomitant]
     Active Substance: LORATADINE
  27. MAGNESIUM [Concomitant]
     Active Substance: MAGNESIUM
  28. MELATONIN [Concomitant]
     Active Substance: MELATONIN
  29. SINGULAIR [Concomitant]
     Active Substance: MONTELUKAST SODIUM

REACTIONS (2)
  - Mental status changes [Unknown]
  - Fall [Unknown]

NARRATIVE: CASE EVENT DATE: 20150922
